FAERS Safety Report 11145051 (Version 1)
Quarter: 2015Q2

REPORT INFORMATION
  Report Type: Spontaneous
  Country: GB (occurrence: None)
  Receive Date: 20150526
  Receipt Date: 20150526
  Transmission Date: 20150821
  Serious: Yes (Hospitalization)
  Sender: FDA-Public Use
  Company Number: None

PATIENT
  Age: 32 Year
  Sex: Female
  Weight: 118 kg

DRUGS (5)
  1. SERTRALINE [Concomitant]
     Active Substance: SERTRALINE HYDROCHLORIDE
  2. CENTRUM ADVANCE IRON + VIT B + C [Concomitant]
  3. NEXPLANON [Suspect]
     Active Substance: ETONOGESTREL
     Indication: CONTRACEPTION
     Dosage: GIVEN INTO/UNDER THE SKIN
     Route: 058
     Dates: start: 20140512, end: 20150522
  4. OLANZAPINE. [Concomitant]
     Active Substance: OLANZAPINE
  5. ADCAL D3 [Concomitant]
     Active Substance: CALCIUM CARBONATE\CHOLECALCIFEROL

REACTIONS (18)
  - Hypersomnia [None]
  - Hunger [None]
  - Electrocardiogram abnormal [None]
  - Malaise [None]
  - Palpitations [None]
  - Loss of consciousness [None]
  - Urine abnormality [None]
  - Amenorrhoea [None]
  - Fatigue [None]
  - Dizziness [None]
  - Laboratory test abnormal [None]
  - Blood pressure decreased [None]
  - Confusional state [None]
  - Constipation [None]
  - Headache [None]
  - Chest pain [None]
  - Menometrorrhagia [None]
  - Seizure [None]

NARRATIVE: CASE EVENT DATE: 20150301
